FAERS Safety Report 9330510 (Version 1)
Quarter: 2013Q2

REPORT INFORMATION
  Report Type: Spontaneous
  Country: US (occurrence: None)
  Receive Date: 20130604
  Receipt Date: 20130604
  Transmission Date: 20140414
  Serious: Yes (Hospitalization)
  Sender: FDA-Public Use
  Company Number: None

PATIENT
  Age: 63 Year
  Sex: Male
  Weight: 78 kg

DRUGS (1)
  1. SEPHB4-HSA [Suspect]
     Indication: TONSIL CANCER
     Dosage: 5 MG/KG D1, 8, 15, 22 IV DRIP
     Dates: start: 20130103, end: 20130424

REACTIONS (4)
  - Nausea [None]
  - Malaise [None]
  - Haematemesis [None]
  - Haemoglobin decreased [None]
